FAERS Safety Report 8480999-7 (Version None)
Quarter: 2012Q3

REPORT INFORMATION
  Report Type: 
  Country: None (occurrence: None)
  Receive Date: 20120702
  Receipt Date: 20120621
  Transmission Date: 20120928
  Serious: Yes (Hospitalization)
  Sender: FDA-Public Use
  Company Number: ES-ELI_LILLY_AND_COMPANY-ES201206007563

PATIENT
  Sex: Male
  Weight: 74 kg

DRUGS (9)
  1. LORAZEPAM [Concomitant]
     Dosage: 2 MG, QD
     Route: 048
  2. FORTEO [Suspect]
     Indication: OSTEOPOROSIS
     Dosage: 20 UG, QD
     Route: 058
     Dates: start: 20120503
  3. PREDNISONE TAB [Concomitant]
     Indication: CHRONIC OBSTRUCTIVE PULMONARY DISEASE
     Route: 048
  4. SINTROM [Concomitant]
     Indication: ATRIAL FIBRILLATION
     Dosage: 2 MG, QD
     Route: 048
  5. VERAPAMIL HCL [Concomitant]
     Dosage: 120 MG, BID
     Route: 048
  6. FUROSEMIDE [Concomitant]
     Indication: RENAL CANCER
     Dosage: 40 MG, QD
     Route: 048
  7. VYTORIN [Concomitant]
     Indication: HYPERCHOLESTEROLAEMIA
     Dosage: 20 MG, QD
     Route: 048
  8. PANTOPRAZOLE [Concomitant]
     Route: 048
  9. FLUMIL                             /00082801/ [Concomitant]
     Indication: CHRONIC OBSTRUCTIVE PULMONARY DISEASE
     Dosage: 15 ML, QD
     Route: 048

REACTIONS (2)
  - DYSPNOEA [None]
  - ACUTE ENDOCARDITIS [None]
